FAERS Safety Report 24119363 (Version 1)
Quarter: 2024Q3

REPORT INFORMATION
  Report Type: Spontaneous
  Country: CN (occurrence: CN)
  Receive Date: 20240722
  Receipt Date: 20240722
  Transmission Date: 20241017
  Serious: Yes (Life-Threatening, Other)
  Sender: AMGEN
  Company Number: CN-AMGEN-CHNSP2024142301

PATIENT
  Age: 13 Year
  Sex: Male

DRUGS (4)
  1. BLINCYTO [Suspect]
     Active Substance: BLINATUMOMAB
     Indication: Acute lymphocytic leukaemia
     Dosage: 9 MICROGRAM, 1 WEEK
     Route: 042
     Dates: start: 20240520, end: 20240527
  2. BLINCYTO [Suspect]
     Active Substance: BLINATUMOMAB
     Dosage: 28 MICROGRAMM, 3 WEEK
     Route: 042
     Dates: start: 2024, end: 202406
  3. BLINCYTO [Suspect]
     Active Substance: BLINATUMOMAB
     Dosage: 9 MICROGRAM, 1 WEEK
     Route: 042
     Dates: start: 20240702, end: 20240708
  4. BLINCYTO [Suspect]
     Active Substance: BLINATUMOMAB
     Dosage: 28 MICROGRAM, 3 WEEK
     Route: 042
     Dates: start: 202407, end: 20240714

REACTIONS (8)
  - Brain herniation [Not Recovered/Not Resolved]
  - Brain oedema [Not Recovered/Not Resolved]
  - Oxygen saturation decreased [Unknown]
  - Blood glucose abnormal [Not Recovered/Not Resolved]
  - Diabetes insipidus [Not Recovered/Not Resolved]
  - Blood pressure increased [Unknown]
  - Hypersensitivity [Unknown]
  - Pyrexia [Not Recovered/Not Resolved]

NARRATIVE: CASE EVENT DATE: 20240714
